FAERS Safety Report 7039627-X (Version None)
Quarter: 2010Q4

REPORT INFORMATION
  Report Type: 
  Country: None (occurrence: None)
  Receive Date: 20101012
  Receipt Date: 20101006
  Transmission Date: 20110411
  Serious: Yes (Other)
  Sender: FDA-Public Use
  Company Number: A0885241A

PATIENT
  Sex: Male

DRUGS (2)
  1. TREXIMET [Suspect]
     Indication: MIGRAINE
     Dosage: 1TAB UNKNOWN
     Route: 048
  2. NO CONCURRENT MEDICATION [Concomitant]

REACTIONS (2)
  - ERYTHEMA [None]
  - RASH [None]
